FAERS Safety Report 7018723-7 (Version None)
Quarter: 2010Q3

REPORT INFORMATION
  Report Type: 
  Country: None (occurrence: None)
  Receive Date: 20100928
  Receipt Date: 20100923
  Transmission Date: 20110219
  Serious: Yes (Other)
  Sender: FDA-Public Use
  Company Number: US-BRISTOL-MYERS SQUIBB COMPANY-15300965

PATIENT
  Age: 55 Year
  Sex: Male

DRUGS (2)
  1. ONGLYZA [Suspect]
  2. ASPIRIN [Concomitant]

REACTIONS (3)
  - EYE SWELLING [None]
  - OCULAR HYPERAEMIA [None]
  - VISUAL ACUITY REDUCED [None]
